FAERS Safety Report 16871631 (Version 1)
Quarter: 2019Q4

REPORT INFORMATION
  Report Type: Spontaneous
  Country: IN (occurrence: IN)
  Receive Date: 20191001
  Receipt Date: 20191001
  Transmission Date: 20200122
  Serious: Yes (Other)
  Sender: FDA-Public Use
  Company Number: IN-MACLEODS PHARMACEUTICALS US LTD-MAC2019023084

PATIENT

DRUGS (4)
  1. RISPERIDONE. [Suspect]
     Active Substance: RISPERIDONE
     Indication: SCHIZOAFFECTIVE DISORDER
     Dosage: 4 MILLIGRAM
     Route: 065
     Dates: start: 2016
  2. QUETIAPINE 150 MG TABLETS [Suspect]
     Active Substance: QUETIAPINE
     Indication: SCHIZOAFFECTIVE DISORDER
     Dosage: 150 MILLIGRAM
     Route: 065
     Dates: start: 2016
  3. LORAZEPAM. [Suspect]
     Active Substance: LORAZEPAM
     Indication: INSOMNIA
     Dosage: 2 MILLIGRAM
     Route: 065
     Dates: start: 2016
  4. LITHIUM. [Suspect]
     Active Substance: LITHIUM
     Indication: SCHIZOAFFECTIVE DISORDER
     Dosage: 900 MILLIGRAM
     Route: 065
     Dates: start: 2016

REACTIONS (2)
  - Schizophrenia [Unknown]
  - Treatment noncompliance [Unknown]
